FAERS Safety Report 24845080 (Version 2)
Quarter: 2025Q1

REPORT INFORMATION
  Report Type: Spontaneous
  Country: US (occurrence: US)
  Receive Date: 20250115
  Receipt Date: 20250119
  Transmission Date: 20250409
  Serious: No
  Sender: BAYER HEALTHCARE PHARMACEUTICALS INC.
  Company Number: US-BAYER-2025A004853

PATIENT
  Age: 59 Year
  Sex: Female

DRUGS (1)
  1. CLIMARA PRO [Suspect]
     Active Substance: ESTRADIOL\LEVONORGESTREL
     Route: 062

REACTIONS (2)
  - Night sweats [None]
  - Device adhesion issue [None]

NARRATIVE: CASE EVENT DATE: 20250110
